FAERS Safety Report 14578597 (Version 1)
Quarter: 2018Q1

REPORT INFORMATION
  Report Type: Not Available
  Country: US (occurrence: US)
  Receive Date: 20180227
  Receipt Date: 20180227
  Transmission Date: 20180509
  Serious: Yes (Hospitalization)
  Sender: FDA-Public Use
  Company Number: US-NEUROCRINE BIOSCIENCES INC.-2018NBI00528

PATIENT
  Sex: Female

DRUGS (10)
  1. BENADRYL [Concomitant]
     Active Substance: DIPHENHYDRAMINE HYDROCHLORIDE
  2. EZETIMIBE. [Concomitant]
     Active Substance: EZETIMIBE
  3. MELATONIN [Concomitant]
     Active Substance: MELATONIN
  4. FINASTERIDE. [Concomitant]
     Active Substance: FINASTERIDE
  5. INGREZZA [Suspect]
     Active Substance: VALBENAZINE
     Indication: PRODUCT USED FOR UNKNOWN INDICATION
     Route: 048
     Dates: start: 20180120
  6. IBUPROFEN. [Concomitant]
     Active Substance: IBUPROFEN
  7. MULTIVITAMIN [Concomitant]
     Active Substance: VITAMINS
  8. TRAMADOL. [Concomitant]
     Active Substance: TRAMADOL
  9. GABAPENTIN. [Concomitant]
     Active Substance: GABAPENTIN
  10. TYLENOL [Concomitant]
     Active Substance: ACETAMINOPHEN

REACTIONS (1)
  - Hospitalisation [Not Recovered/Not Resolved]
